FAERS Safety Report 9426710 (Version 1)
Quarter: 2013Q3

REPORT INFORMATION
  Report Type: Spontaneous
  Country: US (occurrence: US)
  Receive Date: 20130730
  Receipt Date: 20130730
  Transmission Date: 20140515
  Serious: No
  Sender: FDA-Public Use
  Company Number: US-SANOFI-AVENTIS-2012SA073997

PATIENT
  Sex: 0

DRUGS (1)
  1. AMBIEN [Suspect]
     Indication: INSOMNIA
     Route: 065

REACTIONS (5)
  - Cardiac disorder [Unknown]
  - Drug withdrawal syndrome [Unknown]
  - Tongue disorder [Unknown]
  - Gastric disorder [Unknown]
  - Hypoaesthesia [Unknown]
